FAERS Safety Report 8493957-3 (Version None)
Quarter: 2012Q3

REPORT INFORMATION
  Report Type: 
  Country: None (occurrence: None)
  Receive Date: 20120709
  Receipt Date: 20120625
  Transmission Date: 20120928
  Serious: Yes (Hospitalization)
  Sender: FDA-Public Use
  Company Number: CZ-AMGEN-CZESP2012032865

PATIENT
  Age: 67 Year
  Sex: Female

DRUGS (14)
  1. KEPPRA [Concomitant]
     Dosage: UNK
  2. EUTHYROX [Concomitant]
     Dosage: UNK
  3. VIGANTOL                           /00318501/ [Concomitant]
     Dosage: UNK
  4. CALCIUM [Concomitant]
     Dosage: UNK
  5. ENBREL [Suspect]
     Indication: PSORIATIC ARTHROPATHY
     Dosage: 50 MG, WEEKLY
     Route: 058
     Dates: start: 20100101
  6. OMEPRAZOLE [Concomitant]
     Dosage: UNK
  7. PROTELOS [Concomitant]
     Dosage: UNK
  8. EGILIPID [Concomitant]
     Dosage: UNK
  9. MOLSIHEXAL [Concomitant]
     Dosage: UNK
  10. METHOTREXATE [Concomitant]
     Dosage: UNK
  11. CLONAZEPAM [Concomitant]
     Dosage: UNK
  12. RAMIPRIL [Concomitant]
     Dosage: UNK
  13. ASPIRIN [Concomitant]
     Dosage: UNK
  14. ACIDUM FOLICUM [Concomitant]
     Dosage: UNK

REACTIONS (2)
  - RADICULAR SYNDROME [None]
  - MUSCULOSKELETAL PAIN [None]
